FAERS Safety Report 6085918-9 (Version None)
Quarter: 2009Q1

REPORT INFORMATION
  Report Type: 
  Country: None (occurrence: None)
  Receive Date: 20090217
  Receipt Date: 20090217
  Transmission Date: 20090719
  Serious: Yes (Other)
  Sender: FDA-Public Use
  Company Number: None

PATIENT
  Age: 44 Year
  Sex: Female
  Weight: 68.0396 kg

DRUGS (1)
  1. LEVAQUIN [Suspect]
     Indication: SINUSITIS
     Dosage: 1 1 PER DAY PO
     Route: 048
     Dates: start: 20090208, end: 20090210

REACTIONS (9)
  - ARTHRALGIA [None]
  - ARTHRITIS [None]
  - GAIT DISTURBANCE [None]
  - INTERNAL INJURY [None]
  - JOINT SWELLING [None]
  - MENISCUS LESION [None]
  - NIGHTMARE [None]
  - PAIN IN EXTREMITY [None]
  - POOR QUALITY SLEEP [None]
